FAERS Safety Report 17533080 (Version 7)
Quarter: 2021Q4

REPORT INFORMATION
  Report Type: Spontaneous
  Country: US (occurrence: US)
  Receive Date: 20200312
  Receipt Date: 20211022
  Transmission Date: 20220303
  Serious: Yes (Hospitalization, Other)
  Sender: FDA-Public Use
  Company Number: US-GILEAD-2020-0454084

PATIENT
  Age: 62 Year
  Sex: Male
  Weight: 63.49 kg

DRUGS (23)
  1. TRUVADA [Suspect]
     Active Substance: EMTRICITABINE\TENOFOVIR DISOPROXIL FUMARATE
     Indication: HIV infection
     Dosage: UNK
     Route: 048
     Dates: start: 20080903, end: 20110716
  2. TRUVADA [Suspect]
     Active Substance: EMTRICITABINE\TENOFOVIR DISOPROXIL FUMARATE
     Dosage: UNK
     Route: 048
  3. CARVEDILOL [Concomitant]
     Active Substance: CARVEDILOL
  4. HEPARIN [Concomitant]
     Active Substance: HEPARIN SODIUM
  5. ISENTRESS [Concomitant]
     Active Substance: RALTEGRAVIR POTASSIUM
  6. KALETRA [Concomitant]
     Active Substance: LOPINAVIR\RITONAVIR
  7. LAMIVUDINE [Concomitant]
     Active Substance: LAMIVUDINE
  8. FAMOTIDINE [Concomitant]
     Active Substance: FAMOTIDINE
  9. ROCEPHIN [Concomitant]
     Active Substance: CEFTRIAXONE SODIUM
  10. ACETAMINOPHEN [Concomitant]
     Active Substance: ACETAMINOPHEN
  11. AMOXICILLIN [Concomitant]
     Active Substance: AMOXICILLIN
  12. ASPIRIN [Concomitant]
     Active Substance: ASPIRIN
  13. ATORVASTATIN [Concomitant]
     Active Substance: ATORVASTATIN
  14. BACTRIM [Concomitant]
     Active Substance: SULFAMETHOXAZOLE\TRIMETHOPRIM
  15. COMBIVIR [Concomitant]
     Active Substance: LAMIVUDINE\ZIDOVUDINE
  16. CRIXIVAN [Concomitant]
     Active Substance: INDINAVIR SULFATE
  17. EMTRIVA [Concomitant]
     Active Substance: EMTRICITABINE
  18. PREZCOBIX [Concomitant]
     Active Substance: COBICISTAT\DARUNAVIR ETHANOLATE
  19. REYATAZ [Concomitant]
     Active Substance: ATAZANAVIR SULFATE
  20. TIVICAY [Concomitant]
     Active Substance: DOLUTEGRAVIR SODIUM
  21. NORVIR [Concomitant]
     Active Substance: RITONAVIR
  22. EPIVIR [Concomitant]
     Active Substance: LAMIVUDINE
  23. PENICILLIN [Concomitant]
     Active Substance: PENICILLIN

REACTIONS (8)
  - End stage renal disease [Not Recovered/Not Resolved]
  - Chronic kidney disease [Not Recovered/Not Resolved]
  - Renal failure [Unknown]
  - Emotional distress [Not Recovered/Not Resolved]
  - Economic problem [Not Recovered/Not Resolved]
  - Dysstasia [Unknown]
  - Gait disturbance [Unknown]
  - Pain [Not Recovered/Not Resolved]

NARRATIVE: CASE EVENT DATE: 20160629
